FAERS Safety Report 9382968 (Version 1)
Quarter: 2013Q3

REPORT INFORMATION
  Report Type: Spontaneous
  Country: BR (occurrence: BR)
  Receive Date: 20130703
  Receipt Date: 20130703
  Transmission Date: 20140515
  Serious: Yes (Death)
  Sender: FDA-Public Use
  Company Number: PHHY2013BR069110

PATIENT
  Sex: Male

DRUGS (6)
  1. PAMELOR [Suspect]
     Dosage: 10 MG, QD
     Route: 048
  2. CLONAZEPAM [Suspect]
     Dosage: UNK UKN, UNK
  3. DAFLON [Suspect]
     Dosage: UNK UKN, UNK
  4. AAS [Suspect]
     Dosage: UNK UKN, UNK
  5. ISONIAZID [Suspect]
     Dosage: UNK UKN, UNK
  6. ANTIHYPERTENSIVES [Suspect]
     Dosage: UNK UKN, UNK

REACTIONS (1)
  - Death [Fatal]
